FAERS Safety Report 14807424 (Version 1)
Quarter: 2018Q2

REPORT INFORMATION
  Report Type: Spontaneous
  Country: IE (occurrence: IE)
  Receive Date: 20180425
  Receipt Date: 20180425
  Transmission Date: 20180711
  Serious: Yes (Hospitalization)
  Sender: FDA-Public Use
  Company Number: IE-B. BRAUN MEDICAL INC.-2046481

PATIENT
  Sex: Male

DRUGS (2)
  1. 0.9% SODIUM CHLORIDE INJECTION USP 0264-1800-31 0264-1800-32 [Suspect]
     Active Substance: SODIUM CHLORIDE
     Route: 042
  2. CUBICIN [Suspect]
     Active Substance: DAPTOMYCIN

REACTIONS (1)
  - Myalgia [Recovered/Resolved]
